FAERS Safety Report 4596880-X (Version None)
Quarter: 2005Q1

REPORT INFORMATION
  Report Type: 
  Country: None (occurrence: None)
  Receive Date: 20050228
  Receipt Date: 20041222
  Transmission Date: 20050727
  Serious: Yes (Hospitalization, Other)
  Sender: FDA-Public Use
  Company Number: 2004102739

PATIENT
  Age: 69 Year
  Sex: Female
  Weight: 74.3899 kg

DRUGS (18)
  1. CELEBREX [Suspect]
     Indication: ILL-DEFINED DISORDER
     Dates: start: 20000101
  2. LIPITOR [Suspect]
     Indication: CORONARY ARTERY DISEASE
     Dosage: 10 MG (10 MG, 1 IN 1 D), ORAL
     Route: 048
     Dates: start: 20021101, end: 20040801
  3. LIPITOR [Suspect]
     Indication: HYPERLIPIDAEMIA
     Dosage: 10 MG (10 MG, 1 IN 1 D), ORAL
     Route: 048
     Dates: start: 20021101, end: 20040801
  4. LOSARTAN POTASSIUM [Concomitant]
  5. FOLIC ACID [Concomitant]
  6. ASPIRIN [Concomitant]
  7. ESCITALOPRAM (ESCITALOPRAM) [Concomitant]
  8. DILTIAZEM HYDROCHLORIDE [Concomitant]
  9. CYANOCOBALAMIN [Concomitant]
  10. TOCOPHEROL (TOCOPHEROL) [Concomitant]
  11. FUROSEMIDE [Concomitant]
  12. OMEPRAZOLE [Concomitant]
  13. CLOPIDOGREL BISULFATE [Concomitant]
  14. ISOSORBIDE (ISOSORBIDE) [Concomitant]
  15. METOPROLOL TARTRATE [Concomitant]
  16. NITROGLYCERIN [Concomitant]
  17. EZETIMIBE (EZETIMIBE) [Concomitant]
  18. FENOFIBRATE [Concomitant]

REACTIONS (6)
  - ALANINE AMINOTRANSFERASE INCREASED [None]
  - AMNESIA [None]
  - ASPARTATE AMINOTRANSFERASE INCREASED [None]
  - MEMORY IMPAIRMENT [None]
  - MYOCARDIAL INFARCTION [None]
  - THERAPEUTIC RESPONSE DECREASED [None]
